FAERS Safety Report 11409248 (Version 1)
Quarter: 2015Q3

REPORT INFORMATION
  Report Type: Report from Study
  Country: IT (occurrence: IT)
  Receive Date: 20150824
  Receipt Date: 20150824
  Transmission Date: 20151125
  Serious: Yes (Other)
  Sender: FDA-Public Use
  Company Number: IT-ROCHE-1620454

PATIENT
  Sex: Male

DRUGS (11)
  1. ESBRIET [Suspect]
     Active Substance: PIRFENIDONE
     Indication: IDIOPATHIC PULMONARY FIBROSIS
     Dosage: 9 DF
     Route: 065
     Dates: end: 20140402
  2. TACHIPIRINA [Concomitant]
     Active Substance: ACETAMINOPHEN
     Indication: PAIN
  3. ESBRIET [Suspect]
     Active Substance: PIRFENIDONE
     Route: 065
     Dates: start: 20140521, end: 20140619
  4. CIPROFLOXACIN. [Concomitant]
     Active Substance: CIPROFLOXACIN
     Route: 048
     Dates: start: 20140515
  5. ESBRIET [Suspect]
     Active Substance: PIRFENIDONE
     Dosage: 6DF
     Route: 065
     Dates: start: 20140402, end: 20140515
  6. ESBRIET [Suspect]
     Active Substance: PIRFENIDONE
     Dosage: 6 DF/DAY
     Route: 065
     Dates: start: 20140708, end: 20140714
  7. ESBRIET [Suspect]
     Active Substance: PIRFENIDONE
     Dosage: 9 DF/DAY
     Route: 065
     Dates: start: 20140715
  8. ESBRIET [Suspect]
     Active Substance: PIRFENIDONE
     Dosage: 3 DF/ DAY
     Route: 065
     Dates: start: 20140701, end: 20140707
  9. AIRCORT (ITALY) [Concomitant]
     Indication: RHINITIS
     Route: 065
     Dates: start: 201405
  10. RINOPANTEINA [Concomitant]
     Indication: RHINITIS
  11. ELOCON [Concomitant]
     Active Substance: MOMETASONE FUROATE
     Route: 065
     Dates: start: 20140730

REACTIONS (16)
  - Dry mouth [Unknown]
  - Haematuria [Unknown]
  - Rash [Unknown]
  - Anxiety [Unknown]
  - Dysuria [Unknown]
  - Cardiac failure chronic [Unknown]
  - Drug dose omission [Unknown]
  - Erythema [Recovered/Resolved]
  - Sleep apnoea syndrome [Unknown]
  - Oropharyngeal pain [Unknown]
  - Cough [Unknown]
  - Catarrh [Unknown]
  - Pruritus [Unknown]
  - Influenza [Unknown]
  - Urinary tract infection [Unknown]
  - Rash erythematous [Unknown]

NARRATIVE: CASE EVENT DATE: 20140402
